FAERS Safety Report 14559851 (Version 1)
Quarter: 2018Q1

REPORT INFORMATION
  Report Type: Spontaneous
  Country: US (occurrence: US)
  Receive Date: 20180220
  Receipt Date: 20180220
  Transmission Date: 20180509
  Serious: Yes (Life-Threatening, Hospitalization, Other)
  Sender: FDA-Public Use
  Company Number: None

PATIENT
  Sex: Female
  Weight: 65.25 kg

DRUGS (2)
  1. SYMBICORT [Suspect]
     Active Substance: BUDESONIDE\FORMOTEROL FUMARATE DIHYDRATE
     Indication: BRONCHITIS
     Dates: start: 20120329
  2. METROPROL SUCCINATE [Concomitant]

REACTIONS (3)
  - Seizure [None]
  - Feeling abnormal [None]
  - Cardiac arrest [None]

NARRATIVE: CASE EVENT DATE: 20120329
